FAERS Safety Report 6242260-0 (Version None)
Quarter: 2009Q2

REPORT INFORMATION
  Report Type: 
  Country: None (occurrence: None)
  Receive Date: 20090624
  Receipt Date: 20090618
  Transmission Date: 20091009
  Serious: Yes (Hospitalization)
  Sender: FDA-Public Use
  Company Number: BR-BAYER-200917472LA

PATIENT
  Age: 32 Year
  Sex: Female

DRUGS (7)
  1. BETAFERON [Suspect]
     Indication: MULTIPLE SCLEROSIS
     Route: 058
  2. BETAFERON [Suspect]
     Route: 058
     Dates: start: 20000101, end: 20080101
  3. BETAFERON [Suspect]
     Route: 058
     Dates: start: 20080101
  4. BETAFERON [Suspect]
     Dosage: TOTAL DAILY DOSE: 9.6 MIU
     Route: 058
  5. UNKNOWN DRUG [Concomitant]
     Indication: INJECTION SITE INFLAMMATION
     Route: 065
  6. PARACETAMOL [Concomitant]
     Indication: PAIN
     Route: 048
     Dates: start: 20000101
  7. PAMELOR [Concomitant]
     Indication: NERVOUSNESS
     Route: 048
     Dates: start: 20000101

REACTIONS (5)
  - ERYTHEMA [None]
  - INFLUENZA [None]
  - INJECTION SITE INFLAMMATION [None]
  - INJECTION SITE REACTION [None]
  - PNEUMONIA [None]
